FAERS Safety Report 8431161-5 (Version None)
Quarter: 2012Q2

REPORT INFORMATION
  Report Type: 
  Country: None (occurrence: None)
  Receive Date: 20120612
  Receipt Date: 20120529
  Transmission Date: 20120825
  Serious: Yes (Other)
  Sender: FDA-Public Use
  Company Number: CHPA2012US011575

PATIENT
  Age: 39 Year
  Sex: Female

DRUGS (3)
  1. NICOTINE [Suspect]
     Dosage: 21 MG, QD
     Route: 062
  2. XOPENEX [Concomitant]
     Indication: ASTHMA
     Dosage: UNK, PRN
  3. NICOTINE [Suspect]
     Indication: SMOKING CESSATION THERAPY
     Dosage: 14 MG, QD
     Route: 062

REACTIONS (3)
  - NARCOLEPSY [None]
  - DYSPNOEA [None]
  - ABNORMAL DREAMS [None]
